FAERS Safety Report 8360596-4 (Version None)
Quarter: 2012Q2

REPORT INFORMATION
  Report Type: 
  Country: None (occurrence: None)
  Receive Date: 20120515
  Receipt Date: 20120511
  Transmission Date: 20120825
  Serious: No
  Sender: FDA-Public Use
  Company Number: US-B.I. PHARMACEUTICALS,INC./RIDGEFIELD-2012-BP-06998BP

PATIENT
  Sex: Female
  Weight: 87.3 kg

DRUGS (2)
  1. TRADJENTA [Suspect]
     Indication: TYPE 2 DIABETES MELLITUS
     Dosage: 5 MG
     Route: 048
     Dates: start: 20120501, end: 20120508
  2. MICARDIS [Concomitant]
     Indication: HYPERTENSION
     Dosage: 40 MG

REACTIONS (1)
  - WEIGHT INCREASED [None]
